FAERS Safety Report 16564442 (Version 2)
Quarter: 2019Q3

REPORT INFORMATION
  Report Type: Spontaneous
  Country: GB (occurrence: GB)
  Receive Date: 20190712
  Receipt Date: 20190828
  Transmission Date: 20191004
  Serious: Yes (Other)
  Sender: FDA-Public Use
  Company Number: GB-AUROBINDO-AUR-APL-2019-039348

PATIENT

DRUGS (8)
  1. PRALUENT [Suspect]
     Active Substance: ALIROCUMAB
     Indication: TYPE IIA HYPERLIPIDAEMIA
     Dosage: 75 MG, EVRY 2 WEEK
     Route: 058
     Dates: start: 201811, end: 20190430
  2. DISPERIN [Concomitant]
     Indication: ANTICOAGULANT THERAPY
  3. COCODAMOL [Concomitant]
     Active Substance: ACETAMINOPHEN\CODEINE PHOSPHATE
     Indication: PAIN
     Dosage: UNK
     Route: 065
  4. EZETIMIBE. [Suspect]
     Active Substance: EZETIMIBE
     Indication: BLOOD CHOLESTEROL
     Dosage: 10 MILLIGRAM
     Route: 065
     Dates: start: 1992
  5. DISPERIN [Concomitant]
     Indication: CARDIAC DISORDER
     Dosage: 75 MG
     Route: 065
     Dates: start: 2011
  6. CARDIDE SR [Concomitant]
     Indication: BLOOD PRESSURE MEASUREMENT
     Dosage: 1-5 MG
     Route: 065
     Dates: start: 2011
  7. CARDIDE SR [Concomitant]
     Dosage: UNK
  8. ROSUVASTATIN. [Suspect]
     Active Substance: ROSUVASTATIN
     Indication: BLOOD CHOLESTEROL
     Dosage: 20 MILLIGRAM
     Route: 065
     Dates: start: 1992

REACTIONS (5)
  - Insomnia [Recovered/Resolved]
  - Lethargy [Recovered/Resolved]
  - Depressed mood [Not Recovered/Not Resolved]
  - Depression [Not Recovered/Not Resolved]
  - Gastric ulcer [Recovered/Resolved]

NARRATIVE: CASE EVENT DATE: 201904
